FAERS Safety Report 9636436 (Version 2)
Quarter: 2013Q4

REPORT INFORMATION
  Report Type: Spontaneous
  Country: JP (occurrence: JP)
  Receive Date: 20131021
  Receipt Date: 20131118
  Transmission Date: 20140711
  Serious: Yes (Hospitalization)
  Sender: FDA-Public Use
  Company Number: JP-B.I. PHARMACEUTICALS,INC./RIDGEFIELD-2013-BI-33339NB

PATIENT
  Age: 74 Year
  Sex: Male

DRUGS (1)
  1. BI-SIFROL [Suspect]
     Route: 048

REACTIONS (1)
  - Asthma [Unknown]
